FAERS Safety Report 5948485-3 (Version None)
Quarter: 2008Q4

REPORT INFORMATION
  Report Type: 
  Country: None (occurrence: None)
  Receive Date: 20081111
  Receipt Date: 20081107
  Transmission Date: 20090506
  Serious: Yes (Hospitalization)
  Sender: FDA-Public Use
  Company Number: A0755418A

PATIENT
  Sex: Female

DRUGS (3)
  1. THORAZINE [Suspect]
     Indication: SLEEP DISORDER
     Route: 048
     Dates: start: 19940101, end: 20020101
  2. AMBIEN [Concomitant]
  3. SYNTHROID [Concomitant]

REACTIONS (6)
  - CARDIAC ARREST [None]
  - DEPRESSED LEVEL OF CONSCIOUSNESS [None]
  - FEELING ABNORMAL [None]
  - IMMOBILE [None]
  - PARKINSONISM [None]
  - PERFORMANCE STATUS DECREASED [None]
